FAERS Safety Report 7805693-4 (Version None)
Quarter: 2011Q4

REPORT INFORMATION
  Report Type: 
  Country: None (occurrence: None)
  Receive Date: 20111011
  Receipt Date: 20111003
  Transmission Date: 20120403
  Serious: Yes (Hospitalization)
  Sender: FDA-Public Use
  Company Number: US-BIOGENIDEC-2011BI028716

PATIENT
  Sex: Female

DRUGS (4)
  1. AVONEX [Suspect]
     Route: 030
     Dates: start: 20101012, end: 20110331
  2. AVONEX [Suspect]
     Indication: MULTIPLE SCLEROSIS
     Route: 030
     Dates: start: 20110624
  3. AVONEX [Suspect]
     Route: 030
     Dates: start: 20070425, end: 20100902
  4. COPAXONE [Concomitant]
     Indication: MULTIPLE SCLEROSIS
     Dates: start: 20100906, end: 20100915

REACTIONS (8)
  - ARTHROPATHY [None]
  - PROCEDURAL PAIN [None]
  - POST PROCEDURAL COMPLICATION [None]
  - ARTHROSCOPY [None]
  - INFLUENZA LIKE ILLNESS [None]
  - MUSCLE SPASMS [None]
  - TRIGEMINAL NEURALGIA [None]
  - OEDEMA PERIPHERAL [None]
